FAERS Safety Report 7931529-7 (Version None)
Quarter: 2011Q4

REPORT INFORMATION
  Report Type: 
  Country: None (occurrence: None)
  Receive Date: 20111121
  Receipt Date: 20111121
  Transmission Date: 20120403
  Serious: Yes (Death, Life-Threatening, Hospitalization, Disabling, Congenital Anomaly, Other)
  Sender: FDA-Public Use
  Company Number: None

PATIENT
  Age: 39 Year
  Sex: Female
  Weight: 49.895 kg

DRUGS (2)
  1. TOPAMAX [Suspect]
     Indication: CONVULSION
     Dosage: 200
     Route: 048
     Dates: start: 20040101, end: 20111119
  2. TOPAMAX [Concomitant]
     Dosage: 50
     Route: 048

REACTIONS (8)
  - AMNESIA [None]
  - MARITAL PROBLEM [None]
  - CRYING [None]
  - SUICIDAL IDEATION [None]
  - LOSS OF EMPLOYMENT [None]
  - ALOPECIA [None]
  - INSOMNIA [None]
  - SOCIAL PHOBIA [None]
